FAERS Safety Report 7753022-7 (Version None)
Quarter: 2011Q3

REPORT INFORMATION
  Report Type: 
  Country: None (occurrence: None)
  Receive Date: 20110915
  Receipt Date: 20110913
  Transmission Date: 20111222
  Serious: Yes (Other)
  Sender: FDA-Public Use
  Company Number: JP-PFIZER INC-2011216062

PATIENT
  Age: 42 Year
  Sex: Female

DRUGS (8)
  1. ZOLPIDEM [Concomitant]
     Indication: INSOMNIA
     Dosage: 5 MG/DAY
     Route: 048
  2. GAMMALON [Concomitant]
     Dosage: 2 MG/DAY
  3. KETOPROFEN [Concomitant]
     Indication: MYALGIA
     Dosage: UNK
  4. VARENICLINE TARTRATE [Suspect]
     Indication: SMOKING CESSATION THERAPY
     Dosage: 0.5 MG /DAY
     Route: 048
     Dates: start: 20110907, end: 20110909
  5. DEPROMEL [Concomitant]
     Indication: DEPRESSION
     Dosage: 25 MG/DAY
     Route: 048
  6. CINAL [Concomitant]
     Dosage: 3 G/DAY
     Route: 048
  7. NITRAZEPAM [Concomitant]
     Indication: INSOMNIA
     Dosage: 5 MG/DAY
  8. VITAMEDIN CAPSULE [Concomitant]
     Dosage: 3 MG/DAY
     Route: 048

REACTIONS (3)
  - LIP SWELLING [None]
  - ORAL MUCOSA EROSION [None]
  - OEDEMA MOUTH [None]
